FAERS Safety Report 8218790-9 (Version None)
Quarter: 2012Q1

REPORT INFORMATION
  Report Type: 
  Country: None (occurrence: None)
  Receive Date: 20120319
  Receipt Date: 20120314
  Transmission Date: 20120608
  Serious: Yes (Death)
  Sender: FDA-Public Use
  Company Number: PHHY2011MX102543

PATIENT
  Sex: Female

DRUGS (1)
  1. EXELON [Suspect]
     Indication: DEMENTIA ALZHEIMER'S TYPE
     Dosage: 4.6 MG, 1 PATCH 5 CM2 DAILY
     Route: 062
     Dates: start: 20111018

REACTIONS (3)
  - CARDIAC ARREST [None]
  - PERIPHERAL COLDNESS [None]
  - RESPIRATORY ARREST [None]
